FAERS Safety Report 20405988 (Version 1)
Quarter: 2022Q1

REPORT INFORMATION
  Report Type: Spontaneous
  Country: US (occurrence: None)
  Receive Date: 20220131
  Receipt Date: 20220131
  Transmission Date: 20220424
  Serious: Yes (Other)
  Sender: FDA-Public Use
  Company Number: None

PATIENT
  Age: 77 Year
  Sex: Female

DRUGS (10)
  1. PROLIA [Suspect]
     Active Substance: DENOSUMAB
     Indication: Senile osteoporosis
     Dosage: OTHER FREQUENCY : EVERY 6 MONTHS;?
     Route: 058
     Dates: start: 20171128
  2. AMLODIPINE TAB [Concomitant]
  3. ESCITALOPRAM TAB [Concomitant]
  4. HYDROCHLOROT TAB [Concomitant]
  5. METOPROL SUC TAB [Concomitant]
  6. METOPROL TAR TAB [Concomitant]
  7. MULTIVITAMIN TAB WOMEN [Concomitant]
  8. OLMESA MEDOX TAB [Concomitant]
  9. ROSUVASTATIN [Concomitant]
     Active Substance: ROSUVASTATIN
  10. SERTRALINE HYDROCHLORIDE [Concomitant]
     Active Substance: SERTRALINE HYDROCHLORIDE

REACTIONS (5)
  - Hypertension [None]
  - Fall [None]
  - Skull fractured base [None]
  - Vertigo [None]
  - Subdural haematoma [None]

NARRATIVE: CASE EVENT DATE: 20210929
